FAERS Safety Report 9008986 (Version 1)
Quarter: 2013Q1

REPORT INFORMATION
  Report Type: Spontaneous
  Country: GB (occurrence: GB)
  Receive Date: 20130111
  Receipt Date: 20130111
  Transmission Date: 20140127
  Serious: Yes (Other)
  Sender: FDA-Public Use
  Company Number: GB-BAYER-2013-002554

PATIENT
  Age: 73 Year
  Sex: Female

DRUGS (10)
  1. CIPROFLOXACIN [Suspect]
     Indication: COUGH
     Dosage: 500 MG, UNK
     Route: 048
     Dates: start: 20121123, end: 20121123
  2. CETIRIZINE [Concomitant]
     Dosage: 10 MG, QD
  3. CHLORPHENAMINE [Concomitant]
     Dosage: 4 MG, TID
  4. DIGOXIN [Concomitant]
     Dosage: 62.5 ?G, QD
  5. FERROUS SULPHATE [Concomitant]
     Dosage: 200 MG, TID
  6. FOLIC ACID [Concomitant]
     Dosage: 5 MG, QD
  7. FUROSEMIDE [Concomitant]
     Dosage: 80 MG, QD
  8. LANSOPRAZOLE [Concomitant]
     Dosage: 15 MG, QD
  9. PREDNISOLONE [Concomitant]
     Dosage: 2 MG, QD
  10. SPIRONOLACTONE [Concomitant]
     Dosage: 50 MG, BID

REACTIONS (6)
  - Feeling hot [Recovering/Resolving]
  - Malaise [Recovering/Resolving]
  - Headache [Recovering/Resolving]
  - Pruritus [Recovering/Resolving]
  - Dermatitis [Recovering/Resolving]
  - Swelling [Recovering/Resolving]
